FAERS Safety Report 9797444 (Version 1)
Quarter: 2014Q1

REPORT INFORMATION
  Report Type: Spontaneous
  Country: RU (occurrence: RU)
  Receive Date: 20140106
  Receipt Date: 20140106
  Transmission Date: 20141002
  Serious: Yes (Hospitalization)
  Sender: FDA-Public Use
  Company Number: PHHY2013RU151722

PATIENT
  Age: 77 Year
  Sex: Female

DRUGS (1)
  1. IMATINIB [Suspect]
     Route: 048

REACTIONS (5)
  - Oliguria [Unknown]
  - Thirst [Unknown]
  - Visual acuity reduced [Unknown]
  - Oedema peripheral [Unknown]
  - Chest pain [Unknown]
